FAERS Safety Report 22233362 (Version 1)
Quarter: 2023Q2

REPORT INFORMATION
  Report Type: Spontaneous
  Country: US (occurrence: None)
  Receive Date: 20230418
  Receipt Date: 20230418
  Transmission Date: 20230721
  Serious: Yes (Hospitalization)
  Sender: FDA-Public Use
  Company Number: None

PATIENT
  Age: 63 Year
  Sex: Female
  Weight: 84.82 kg

DRUGS (1)
  1. QUETIAPINE [Suspect]
     Active Substance: QUETIAPINE
     Dosage: FREQUENCY : DAILY;?
     Route: 048
     Dates: start: 20230410, end: 20230417

REACTIONS (1)
  - Extrapyramidal disorder [None]

NARRATIVE: CASE EVENT DATE: 20230417
